FAERS Safety Report 21530834 (Version 3)
Quarter: 2023Q2

REPORT INFORMATION
  Report Type: Spontaneous
  Country: US (occurrence: US)
  Receive Date: 20221031
  Receipt Date: 20230427
  Transmission Date: 20230722
  Serious: Yes (Other)
  Sender: FDA-Public Use
  Company Number: US-PFIZER INC-PV202200093025

PATIENT
  Age: 69 Year
  Sex: Male

DRUGS (1)
  1. XELJANZ XR [Suspect]
     Active Substance: TOFACITINIB CITRATE
     Dosage: UNK
     Dates: end: 202210

REACTIONS (9)
  - Spinal operation [Unknown]
  - Leprosy [Unknown]
  - Feeling abnormal [Unknown]
  - Arthritis [Unknown]
  - Rash [Unknown]
  - Pruritus [Unknown]
  - Skin lesion [Unknown]
  - Pain [Not Recovered/Not Resolved]
  - Condition aggravated [Unknown]

NARRATIVE: CASE EVENT DATE: 20221001
